FAERS Safety Report 5000785-X (Version None)
Quarter: 2006Q2

REPORT INFORMATION
  Report Type: 
  Country: None (occurrence: None)
  Receive Date: 20060512
  Receipt Date: 20060118
  Transmission Date: 20061013
  Serious: Yes (Other)
  Sender: FDA-Public Use
  Company Number: US-MERCK-0601USA02194

PATIENT
  Age: 40 Year
  Sex: Female
  Weight: 66 kg

DRUGS (4)
  1. VIOXX [Suspect]
     Indication: PAIN
     Route: 048
     Dates: start: 19990101, end: 20030101
  2. ADVIL [Concomitant]
     Route: 065
     Dates: start: 19990101, end: 20030101
  3. TYLENOL (CAPLET) [Concomitant]
     Route: 065
     Dates: start: 19990101, end: 20030101
  4. CELEXA [Concomitant]
     Route: 065
     Dates: start: 19990101

REACTIONS (3)
  - CEREBROVASCULAR ACCIDENT [None]
  - DEPRESSION [None]
  - PNEUMONIA [None]
